FAERS Safety Report 6150921-7 (Version None)
Quarter: 2009Q2

REPORT INFORMATION
  Report Type: 
  Country: None (occurrence: None)
  Receive Date: 20090408
  Receipt Date: 20090324
  Transmission Date: 20091009
  Serious: Yes (Hospitalization)
  Sender: FDA-Public Use
  Company Number: 2006S1011245

PATIENT
  Age: 7 Year
  Sex: Male
  Weight: 8.7 kg

DRUGS (1)
  1. MERCAPTAMINE BITARTRATE (MERCAPTAMINE BITARTRATE) [Suspect]
     Dosage: DAILY;ORAL ; 200 MG;DAILY;ORAL ; 76 MG/KG;DAILY;ORAL ; 1200 MG;DAILY;ORAL ; 1800 MG;DAILY;ORAL
     Route: 048
     Dates: start: 19980101

REACTIONS (6)
  - BLOOD CREATININE INCREASED [None]
  - DIZZINESS [None]
  - HEADACHE [None]
  - HYPERSENSITIVITY [None]
  - RENAL IMPAIRMENT [None]
  - VOMITING [None]
